FAERS Safety Report 4721507-3 (Version None)
Quarter: 2005Q3

REPORT INFORMATION
  Report Type: 
  Country: None (occurrence: None)
  Receive Date: 20050721
  Receipt Date: 20041026
  Transmission Date: 20060218
  Serious: No
  Sender: FDA-Public Use
  Company Number: US-BRISTOL-MYERS SQUIBB COMPANY-12746681

PATIENT
  Age: 45 Year
  Sex: Female
  Weight: 85 kg

DRUGS (14)
  1. COUMADIN [Suspect]
     Indication: CARDIAC FAILURE CONGESTIVE
     Dosage: CURRENT DOSE 7MG TUES.,THU.,SAT.,SUN.,1/2 7.5MG MON.,WED.,FRI;DECREASED 21-OCT-04
     Route: 048
     Dates: start: 20040301
  2. FLU VACCINE [Suspect]
     Dates: start: 20041016
  3. METFORMIN HCL [Concomitant]
  4. GLUCOPHAGE [Concomitant]
  5. GLUCOTROL [Concomitant]
  6. ACTOS [Concomitant]
  7. ZOLOFT [Concomitant]
  8. LASIX [Concomitant]
  9. MEVACOR [Concomitant]
  10. ADVAIR DISKUS 100/50 [Concomitant]
  11. ALBUTEROL [Concomitant]
  12. ATROVENT [Concomitant]
  13. COREG [Concomitant]
  14. SPIRONOLACTONE [Concomitant]

REACTIONS (1)
  - INTERNATIONAL NORMALISED RATIO INCREASED [None]
